FAERS Safety Report 5854213-2 (Version None)
Quarter: 2008Q3

REPORT INFORMATION
  Report Type: 
  Country: None (occurrence: None)
  Receive Date: 20080822
  Receipt Date: 20080812
  Transmission Date: 20090109
  Serious: Yes (Other)
  Sender: FDA-Public Use
  Company Number: PHEH2008US07084

PATIENT
  Sex: Male

DRUGS (16)
  1. GLEEVEC [Suspect]
     Indication: GASTRIC SARCOMA
     Dosage: 400 MG, QD
     Route: 048
     Dates: start: 20080803, end: 20080803
  2. GLEEVEC [Interacting]
     Dosage: 200 MG, QD
     Route: 048
     Dates: start: 20080804, end: 20080810
  3. FLUCONAZOLE [Interacting]
     Indication: CANDIDIASIS
     Dosage: 100 MG, QD
     Route: 048
     Dates: start: 20080701, end: 20080701
  4. FLUCONAZOLE [Interacting]
     Dosage: 100 MG, QD
     Route: 048
     Dates: start: 20080807
  5. ANDROID 5 [Concomitant]
     Dosage: 10 MG, BID
  6. BROMOCRIPTINE MESYLATE [Concomitant]
     Dosage: 1/2 TAB DAILY OR BID
  7. PREGNENOLONE [Concomitant]
     Dosage: 1 DAILY
  8. DHEA [Concomitant]
     Dosage: 1 DAILY
  9. HERBAL EXTRACTS NOS [Concomitant]
  10. CIMETIDINE [Concomitant]
     Dosage: 300 MG, QID
  11. OXYCODONE HCL [Concomitant]
     Dosage: 1-2 TAB Q4H PRN
  12. SENOKOT [Concomitant]
     Dosage: 2 BID
  13. ASCORBIC ACID [Concomitant]
     Dosage: 5 AT BREAKFAST
  14. B-50 [Concomitant]
     Dosage: 1-2 DAILY
  15. COQ10 [Concomitant]
     Dosage: 50 MG, BID
  16. VITAMIN D3 [Concomitant]
     Dosage: 1000 IU, DAILY

REACTIONS (8)
  - CHILLS [None]
  - CHOKING SENSATION [None]
  - CONFUSIONAL STATE [None]
  - DRUG INTERACTION [None]
  - OEDEMA PERIPHERAL [None]
  - PENILE SWELLING [None]
  - PYREXIA [None]
  - SCROTAL SWELLING [None]
